FAERS Safety Report 4974086-X (Version None)
Quarter: 2006Q2

REPORT INFORMATION
  Report Type: 
  Country: None (occurrence: None)
  Receive Date: 20060417
  Receipt Date: 20060306
  Transmission Date: 20061013
  Serious: Yes (Hospitalization)
  Sender: FDA-Public Use
  Company Number: CN-ROCHE-439079

PATIENT
  Age: 73 Year
  Sex: Female

DRUGS (8)
  1. CAPECITABINE [Suspect]
     Indication: BREAST CANCER
     Dosage: CLARIFIED AS CYCLE 1
     Route: 048
     Dates: start: 20051210
  2. CAPECITABINE [Suspect]
     Dosage: CLARIFIED AS CYCLE 2 STARTED ON AN UNSPECIFIED DATE.
     Route: 048
  3. CAPECITABINE [Suspect]
     Dosage: CLARIFIED AS CYCLE 3 STARTED ON AN UNSPECIFIED DATE.
     Route: 048
  4. CAPECITABINE [Suspect]
     Dosage: CLARIFIED AS CYCLE 4
     Route: 048
     Dates: start: 20060211, end: 20060218
  5. IXABEPILONE [Suspect]
     Indication: BREAST CANCER
     Dosage: CLARIFIED AS CYCLE 1
     Route: 042
     Dates: start: 20051210
  6. IXABEPILONE [Suspect]
     Dosage: CLARIFIED AS CYCLE 2 STARTED ON AN UNSPECIFIED DATE.
     Route: 042
  7. IXABEPILONE [Suspect]
     Dosage: CLARIFIED AS CYCLE 3 STARTED ON AN UNSPECIFIED DATE.
     Route: 042
  8. IXABEPILONE [Suspect]
     Dosage: CLARIFIED AS CYCLE 4
     Route: 042
     Dates: start: 20060211, end: 20060211

REACTIONS (5)
  - INFECTION [None]
  - NEUTROPHIL COUNT DECREASED [None]
  - PLATELET COUNT DECREASED [None]
  - STOMATITIS [None]
  - WHITE BLOOD CELL COUNT DECREASED [None]
